FAERS Safety Report 8016618-3 (Version None)
Quarter: 2011Q4

REPORT INFORMATION
  Report Type: 
  Country: None (occurrence: None)
  Receive Date: 20111231
  Receipt Date: 20111223
  Transmission Date: 20120403
  Serious: Yes (Hospitalization)
  Sender: FDA-Public Use
  Company Number: CHPA2011US018588

PATIENT
  Age: 77 Year
  Sex: Female

DRUGS (2)
  1. EXCEDRIN TENSION HEADACHE [Suspect]
     Indication: BACK PAIN
     Dosage: 8 CAPLETS PER DAY
     Route: 048
     Dates: start: 19900101, end: 20060101
  2. EXCEDRIN TENSION HEADACHE [Suspect]
     Dosage: 2 CAPLETS PER DAY
     Route: 048
     Dates: start: 20060101

REACTIONS (6)
  - SCIATICA [None]
  - FALL [None]
  - INCORRECT DRUG ADMINISTRATION DURATION [None]
  - BACK PAIN [None]
  - INTERVERTEBRAL DISC PROTRUSION [None]
  - OFF LABEL USE [None]
